FAERS Safety Report 22133724 (Version 2)
Quarter: 2023Q2

REPORT INFORMATION
  Report Type: Spontaneous
  Country: JP (occurrence: JP)
  Receive Date: 20230324
  Receipt Date: 20230504
  Transmission Date: 20230721
  Serious: Yes (Other)
  Sender: FDA-Public Use
  Company Number: JP-JNJFOC-20230358337

PATIENT
  Age: 62 Year
  Sex: Male
  Weight: 74 kg

DRUGS (16)
  1. UPTRAVI [Suspect]
     Active Substance: SELEXIPAG
     Indication: Pulmonary arterial hypertension
     Route: 048
     Dates: start: 20170621, end: 20170718
  2. UPTRAVI [Suspect]
     Active Substance: SELEXIPAG
     Route: 048
     Dates: start: 20170719, end: 20170815
  3. UPTRAVI [Suspect]
     Active Substance: SELEXIPAG
     Route: 048
     Dates: start: 20170816, end: 20170829
  4. UPTRAVI [Suspect]
     Active Substance: SELEXIPAG
     Route: 048
     Dates: start: 20170830, end: 20170912
  5. UPTRAVI [Suspect]
     Active Substance: SELEXIPAG
     Route: 048
     Dates: start: 20170913, end: 20170919
  6. UPTRAVI [Suspect]
     Active Substance: SELEXIPAG
     Route: 048
     Dates: start: 20170920, end: 20191225
  7. UPTRAVI [Suspect]
     Active Substance: SELEXIPAG
     Route: 048
     Dates: start: 20191226
  8. UPTRAVI [Suspect]
     Active Substance: SELEXIPAG
     Dosage: ONGOING
     Route: 048
  9. ADCIRCA [Concomitant]
     Active Substance: TADALAFIL
     Indication: Pulmonary arterial hypertension
  10. OPSUMIT [Concomitant]
     Active Substance: MACITENTAN
     Indication: Pulmonary arterial hypertension
  11. LOSARTAN POTASSIUM [Concomitant]
     Active Substance: LOSARTAN POTASSIUM
  12. FUROSEMIDE [Concomitant]
     Active Substance: FUROSEMIDE
  13. ESOMEPRAZOLE MAGNESIUM [Concomitant]
     Active Substance: ESOMEPRAZOLE MAGNESIUM
  14. FEBUXOSTAT [Concomitant]
     Active Substance: FEBUXOSTAT
  15. WARFARIN [Concomitant]
     Active Substance: WARFARIN
  16. FERROUS SULFATE [Concomitant]
     Active Substance: FERROUS SULFATE
     Dates: end: 20170801

REACTIONS (2)
  - Neoplasm malignant [Unknown]
  - Anaemia [Not Recovered/Not Resolved]
